FAERS Safety Report 12374424 (Version 1)
Quarter: 2016Q2

REPORT INFORMATION
  Report Type: Spontaneous
  Country: DE (occurrence: DE)
  Receive Date: 20160517
  Receipt Date: 20160517
  Transmission Date: 20160815
  Serious: Yes (Other)
  Sender: FDA-Public Use
  Company Number: DE-BAXTER-2016BAX024308

PATIENT
  Age: 56 Year
  Sex: Female

DRUGS (1)
  1. ISOTONE KOCHSALZL?SUNG BAXTER [Suspect]
     Active Substance: SODIUM CHLORIDE
     Indication: FLUID REPLACEMENT
     Route: 065

REACTIONS (3)
  - Iatrogenic injury [Unknown]
  - Fluid overload [Unknown]
  - Metabolic acidosis [Unknown]
